FAERS Safety Report 5313024-7 (Version None)
Quarter: 2007Q2

REPORT INFORMATION
  Report Type: 
  Country: None (occurrence: None)
  Receive Date: 20070430
  Receipt Date: 20070418
  Transmission Date: 20071010
  Serious: Yes (Other)
  Sender: FDA-Public Use
  Company Number: US-PFIZER INC-2007012385

PATIENT
  Sex: Female
  Weight: 63.5 kg

DRUGS (7)
  1. LYRICA [Suspect]
     Indication: NEURALGIA
  2. LYRICA [Suspect]
     Indication: SPINAL OPERATION
  3. LYRICA [Suspect]
     Indication: RADICULAR PAIN
  4. HYDROCHLOROTHIAZIDE [Concomitant]
     Dosage: DAILY DOSE:12.5MG
  5. DAYPRO [Concomitant]
     Dosage: DAILY DOSE:750MG
     Route: 048
     Dates: start: 20070101
  6. LEXAPRO [Concomitant]
     Dates: start: 20060901
  7. PREMPRO [Concomitant]

REACTIONS (5)
  - CONTUSION [None]
  - DEPRESSION [None]
  - HYPERTENSION [None]
  - RASH [None]
  - SCRATCH [None]
